FAERS Safety Report 22024511 (Version 1)
Quarter: 2023Q1

REPORT INFORMATION
  Report Type: Spontaneous
  Country: US (occurrence: US)
  Receive Date: 20230223
  Receipt Date: 20230223
  Transmission Date: 20230418
  Serious: No
  Sender: FDA-Public Use
  Company Number: US-BRISTOL-MYERS SQUIBB COMPANY-2023-021462

PATIENT
  Age: 45 Year
  Sex: Female

DRUGS (1)
  1. THALOMID [Suspect]
     Active Substance: THALIDOMIDE
     Indication: Systemic lupus erythematosus
     Dosage: QHS-EVERY NIGHT AT BEDTIME
     Route: 048
     Dates: start: 20221007

REACTIONS (2)
  - Intentional product use issue [Unknown]
  - Drug ineffective [Unknown]
